FAERS Safety Report 8095929-X (Version None)
Quarter: 2012Q1

REPORT INFORMATION
  Report Type: 
  Country: None (occurrence: None)
  Receive Date: 20120129
  Receipt Date: 20111222
  Transmission Date: 20120608
  Serious: No
  Sender: FDA-Public Use
  Company Number: US-ABBOTT-11P-163-0886672-00

PATIENT
  Age: 43 Year
  Sex: Female

DRUGS (8)
  1. FERROUS SULFATE TAB [Concomitant]
     Indication: PRODUCT USED FOR UNKNOWN INDICATION
  2. HYDROXYCHLOROQUINE SULFATE [Concomitant]
     Indication: RHEUMATOID ARTHRITIS
  3. HYDROCODONE BITARTRATE [Concomitant]
     Indication: PAIN
     Dosage: 10/650
  4. HUMIRA [Suspect]
     Indication: RHEUMATOID ARTHRITIS
     Dates: start: 20111208
  5. METHOTREXATE [Concomitant]
     Indication: PRODUCT USED FOR UNKNOWN INDICATION
  6. FUROSEMIDE [Concomitant]
     Indication: SWELLING
  7. SYNTHROID [Concomitant]
     Indication: HYPOTHYROIDISM
  8. FOLIC ACID [Concomitant]
     Indication: PRODUCT USED FOR UNKNOWN INDICATION
     Dosage: EVERYDAY EXCEPT FRIDAYS

REACTIONS (2)
  - PYREXIA [None]
  - FATIGUE [None]
